FAERS Safety Report 9513700 (Version 1)
Quarter: 2013Q1

REPORT INFORMATION
  Report Type: Spontaneous
  Country: US (occurrence: None)
  Receive Date: 20130305
  Receipt Date: 20130305
  Transmission Date: 20140127
  Serious: Yes (Other)
  Sender: FDA-Public Use
  Company Number: 163-21880-12102111

PATIENT
  Age: 86 Year
  Sex: Female
  Weight: 62.6 kg

DRUGS (9)
  1. REVLIMID (LENALIDOMIDE) (25 MILLIGRAM, CAPSULES) [Suspect]
     Indication: PLASMA CELL MYELOMA
     Route: 048
     Dates: start: 20120113
  2. ASPIRIN (ACETYLSALICYLIC ACID) [Concomitant]
  3. CENTRUM (CENTRUM) (TABLETS) [Concomitant]
  4. MICARDIS (TELMISARTAN) [Concomitant]
  5. NITROGLYCERINE (GLYCERYL TRINITRATE) [Concomitant]
  6. PROTONIX [Concomitant]
  7. XANAX (ALPRAZOLAM) [Concomitant]
  8. CLARITIN (LORATADINE) [Concomitant]
  9. DEXAMETHASONE (DEXAMETHASONE) [Concomitant]

REACTIONS (3)
  - Platelet count decreased [None]
  - Dyspnoea [None]
  - Oedema peripheral [None]
